FAERS Safety Report 8093681-5 (Version None)
Quarter: 2012Q1

REPORT INFORMATION
  Report Type: 
  Country: None (occurrence: None)
  Receive Date: 20120129
  Receipt Date: 20110929
  Transmission Date: 20120608
  Serious: No
  Sender: FDA-Public Use
  Company Number: US-ABBOTT-11P-163-0859947-00

PATIENT
  Age: 73 Year
  Sex: Female

DRUGS (6)
  1. OXYCODONE HCL [Concomitant]
     Indication: ABDOMINAL PAIN
     Dosage: PRN
  2. IRON [Concomitant]
     Indication: MINERAL SUPPLEMENTATION
  3. HUMIRA [Suspect]
     Indication: CROHN'S DISEASE
     Dates: start: 20110601
  4. SYNTHROID [Concomitant]
     Indication: PRODUCT USED FOR UNKNOWN INDICATION
  5. METFORMIN HCL [Concomitant]
     Indication: DIABETES MELLITUS
  6. QUINAPRIL [Concomitant]
     Indication: HYPERTENSION

REACTIONS (2)
  - DRUG INEFFECTIVE [None]
  - ABDOMINAL PAIN LOWER [None]
